FAERS Safety Report 6983951-3 (Version None)
Quarter: 2010Q3

REPORT INFORMATION
  Report Type: 
  Country: None (occurrence: None)
  Receive Date: 20100914
  Receipt Date: 20090401
  Transmission Date: 20110219
  Serious: No
  Sender: FDA-Public Use
  Company Number: US-WYE-H08809209

PATIENT
  Age: 87 Year
  Sex: Male
  Weight: 90.8 kg

DRUGS (3)
  1. ADVIL LIQUI-GELS [Suspect]
     Indication: MUSCULOSKELETAL PAIN
     Dosage: 1 CAPSUL AS NEEDED
     Route: 048
     Dates: end: 20090331
  2. SIMVASTATIN [Concomitant]
  3. ASPIRIN [Concomitant]

REACTIONS (2)
  - ABDOMINAL DISCOMFORT [None]
  - EAR PAIN [None]
